FAERS Safety Report 7931426-7 (Version None)
Quarter: 2011Q4

REPORT INFORMATION
  Report Type: 
  Country: None (occurrence: None)
  Receive Date: 20111121
  Receipt Date: 20111111
  Transmission Date: 20120403
  Serious: Yes (Death, Life-Threatening, Hospitalization)
  Sender: FDA-Public Use
  Company Number: JP-ABBOTT-11P-087-0875691-00

PATIENT
  Sex: Male

DRUGS (5)
  1. FENTANYL-100 [Concomitant]
     Indication: MAINTENANCE OF ANAESTHESIA
     Route: 042
     Dates: start: 20101201, end: 20101201
  2. REMIFENTANIL [Concomitant]
     Indication: MAINTENANCE OF ANAESTHESIA
     Dosage: DR
     Route: 050
     Dates: start: 20101201, end: 20101201
  3. EPINEPHRINE [Concomitant]
     Indication: PRODUCT USED FOR UNKNOWN INDICATION
  4. SEVOFLURANE [Suspect]
     Indication: MAINTENANCE OF ANAESTHESIA
     Route: 055
     Dates: start: 20101201, end: 20101202
  5. EPIDURAL ANESTHETICS [Concomitant]
     Indication: ANAESTHESIA

REACTIONS (2)
  - CARDIAC ARREST [None]
  - STRESS CARDIOMYOPATHY [None]
